FAERS Safety Report 9125995 (Version 1)
Quarter: 2013Q1

REPORT INFORMATION
  Report Type: Spontaneous
  Country: DE (occurrence: DE)
  Receive Date: 20130228
  Receipt Date: 20130228
  Transmission Date: 20140127
  Serious: Yes (Hospitalization)
  Sender: FDA-Public Use
  Company Number: DE-GE HEALTHCARE MEDICAL DIAGNOSTICS-VISP-GE-1302S-0423

PATIENT
  Age: 45 Year
  Sex: Male
  Weight: 128 kg

DRUGS (2)
  1. VISIPAQUE [Suspect]
     Indication: MALIGNANT MELANOMA
     Route: 042
     Dates: start: 20130218, end: 20130218
  2. VISIPAQUE [Suspect]
     Indication: DIAGNOSTIC PROCEDURE

REACTIONS (1)
  - Rash pustular [Recovered/Resolved]
